FAERS Safety Report 9085616 (Version 1)
Quarter: 2013Q1

REPORT INFORMATION
  Report Type: Report from Study
  Country: DE (occurrence: DE)
  Receive Date: 20130131
  Receipt Date: 20130131
  Transmission Date: 20140127
  Serious: Yes (Hospitalization)
  Sender: FDA-Public Use
  Company Number: DE-ABBOTT-13P-062-1043242-00

PATIENT
  Sex: Male

DRUGS (9)
  1. HUMIRA [Suspect]
     Indication: PSORIATIC ARTHROPATHY
     Route: 058
     Dates: start: 20071201
  2. METHOTREXATE [Concomitant]
     Indication: PRODUCT USED FOR UNKNOWN INDICATION
  3. ALFUZOSINE [Concomitant]
     Indication: PRODUCT USED FOR UNKNOWN INDICATION
  4. METOHEXAL SUCC [Concomitant]
     Indication: PRODUCT USED FOR UNKNOWN INDICATION
  5. DRUG FOR CARDIAC DISEASE [Concomitant]
     Indication: PRODUCT USED FOR UNKNOWN INDICATION
  6. THYRONAJOD [Concomitant]
     Indication: PRODUCT USED FOR UNKNOWN INDICATION
  7. IRON [Concomitant]
     Indication: PRODUCT USED FOR UNKNOWN INDICATION
  8. POTASSIUM [Concomitant]
     Indication: PRODUCT USED FOR UNKNOWN INDICATION
  9. CHOLESTEROL-LOWERING DRUG [Concomitant]
     Indication: PRODUCT USED FOR UNKNOWN INDICATION

REACTIONS (2)
  - Arthritis [Not Recovered/Not Resolved]
  - Nodule [Unknown]
